FAERS Safety Report 8001710-X (Version None)
Quarter: 2011Q4

REPORT INFORMATION
  Report Type: 
  Country: None (occurrence: None)
  Receive Date: 20111222
  Receipt Date: 20111208
  Transmission Date: 20120403
  Serious: Yes (Other)
  Sender: FDA-Public Use
  Company Number: US-JNJFOC-20111102687

PATIENT
  Sex: Male
  Weight: 78.2 kg

DRUGS (17)
  1. VITAMIN B-12 [Concomitant]
     Indication: VITAMIN B12 DEFICIENCY
  2. SIMVASTATIN [Concomitant]
     Indication: BLOOD CHOLESTEROL INCREASED
  3. CARAFATE [Concomitant]
     Indication: ULCER
  4. PROBIOTIC [Concomitant]
  5. IMODIUM [Concomitant]
  6. BYETTA [Concomitant]
  7. GLUCOPHAGE [Concomitant]
     Indication: DIABETES MELLITUS
  8. REMICADE [Suspect]
     Route: 042
     Dates: start: 20071101, end: 20090601
  9. REMICADE [Suspect]
     Indication: COLITIS ULCERATIVE
     Route: 042
     Dates: start: 20111005, end: 20110101
  10. IMURAN [Suspect]
     Indication: PRODUCT USED FOR UNKNOWN INDICATION
     Dates: start: 20060301
  11. GLYBURIDE [Concomitant]
     Indication: DIABETES MELLITUS
  12. APRISO [Concomitant]
     Indication: COLITIS ULCERATIVE
  13. PREDNISONE [Concomitant]
  14. A MULTIVITAMIN [Concomitant]
  15. REMICADE [Suspect]
     Route: 042
     Dates: start: 20090801, end: 20110701
  16. VALIUM [Concomitant]
  17. ALL OTHER THERAPEUTIC DRUG [Concomitant]

REACTIONS (4)
  - LUNG CANCER METASTATIC [None]
  - WEIGHT DECREASED [None]
  - METASTASES TO LIVER [None]
  - DIARRHOEA [None]
